FAERS Safety Report 5338215-0 (Version None)
Quarter: 2007Q2

REPORT INFORMATION
  Report Type: 
  Country: None (occurrence: None)
  Receive Date: 20070329
  Receipt Date: 20070209
  Transmission Date: 20071010
  Serious: Yes (Other)
  Sender: FDA-Public Use
  Company Number: US-JNJFOC-20070202946

PATIENT
  Age: 49 Year
  Sex: Female

DRUGS (4)
  1. ULTRAM ER [Suspect]
     Indication: PAIN
     Dosage: , 1 IN 12 HOUR, ORAL
     Route: 048
     Dates: start: 20070208
  2. BACTRIM (BACTRIM) TABLET [Concomitant]
  3. NEXIUM [Concomitant]
  4. EFFEXOR XR [Concomitant]

REACTIONS (2)
  - CONVULSION [None]
  - HYPERTENSION [None]
